FAERS Safety Report 6731196-4 (Version None)
Quarter: 2010Q2

REPORT INFORMATION
  Report Type: 
  Country: None (occurrence: None)
  Receive Date: 20100518
  Receipt Date: 20100505
  Transmission Date: 20101027
  Serious: Yes (Other)
  Sender: FDA-Public Use
  Company Number: US-ELI_LILLY_AND_COMPANY-US201004007385

PATIENT
  Sex: Female

DRUGS (1)
  1. EFFIENT [Suspect]
     Dosage: 60 MG, UNK

REACTIONS (2)
  - PLATELET FUNCTION TEST ABNORMAL [None]
  - THROMBOSIS IN DEVICE [None]
